FAERS Safety Report 19865997 (Version 2)
Quarter: 2021Q4

REPORT INFORMATION
  Report Type: Report from Study
  Country: GB (occurrence: GB)
  Receive Date: 20210921
  Receipt Date: 20211221
  Transmission Date: 20220303
  Serious: Yes (Hospitalization)
  Sender: FDA-Public Use
  Company Number: GB-CELGENE-GBR-20210700012

PATIENT
  Sex: Male
  Weight: 88.3 kg

DRUGS (13)
  1. AZACITIDINE [Suspect]
     Active Substance: AZACITIDINE
     Indication: Acute myeloid leukaemia
     Dosage: 200 MILLIGRAM
     Route: 048
     Dates: start: 20210519, end: 20210628
  2. AZACITIDINE [Suspect]
     Active Substance: AZACITIDINE
     Indication: Myelodysplastic syndrome
     Dosage: 200 MILLIGRAM
     Route: 048
     Dates: start: 20210705
  3. CYCLOSPORINE [Concomitant]
     Active Substance: CYCLOSPORINE
     Indication: Immunosuppression
     Dosage: 75 MILLIGRAM
     Route: 065
     Dates: start: 20210403
  4. ACYCLOVIR [Concomitant]
     Active Substance: ACYCLOVIR
     Indication: Antiviral prophylaxis
     Dosage: 200 MILLIGRAM
     Route: 065
     Dates: start: 20210403
  5. PENICILLIN [Concomitant]
     Active Substance: PENICILLIN
     Indication: Antibiotic prophylaxis
     Dosage: 250 MILLIGRAM
     Route: 065
     Dates: start: 20210407
  6. OMEPRAZOLE [Concomitant]
     Active Substance: OMEPRAZOLE
     Indication: Gastritis prophylaxis
     Dosage: 20 MILLIGRAM
     Route: 065
     Dates: start: 20210404
  7. COTRIMOXAZOLE [Concomitant]
     Active Substance: SULFAMETHOXAZOLE\TRIMETHOPRIM
     Indication: Antifungal prophylaxis
     Dosage: 480 MILLIGRAM
     Route: 065
     Dates: start: 20210507
  8. BISOPROLOL [Concomitant]
     Active Substance: BISOPROLOL
     Indication: Atrial fibrillation
     Route: 065
     Dates: start: 20210630
  9. DALTEPARIN [Concomitant]
     Active Substance: DALTEPARIN
     Indication: Premature ejaculation
     Dosage: 7500 MILLIGRAM
     Route: 065
     Dates: start: 20210628
  10. GILTERITINIB [Concomitant]
     Active Substance: GILTERITINIB
     Indication: Acute myeloid leukaemia (in remission)
     Dosage: 20 MILLIGRAM
     Route: 065
     Dates: start: 20210705
  11. VORICONAZOLE [Concomitant]
     Active Substance: VORICONAZOLE
     Indication: Antifungal prophylaxis
     Dosage: 200 MILLIGRAM
     Route: 065
     Dates: start: 20210403
  12. EUMOVATE [Concomitant]
     Active Substance: CLOBETASONE BUTYRATE
     Indication: Graft versus host disease
     Route: 065
     Dates: start: 20210401
  13. CLOBETASOL [Concomitant]
     Active Substance: CLOBETASOL
     Indication: Graft versus host disease
     Route: 065
     Dates: start: 20210401

REACTIONS (2)
  - Embolism [Recovered/Resolved with Sequelae]
  - Febrile neutropenia [Recovered/Resolved with Sequelae]

NARRATIVE: CASE EVENT DATE: 20210628
